FAERS Safety Report 16802504 (Version 1)
Quarter: 2019Q3

REPORT INFORMATION
  Report Type: Spontaneous
  Country: JP (occurrence: JP)
  Receive Date: 20190912
  Receipt Date: 20190912
  Transmission Date: 20191005
  Serious: Yes (Hospitalization, Other)
  Sender: FDA-Public Use
  Company Number: JP-009507513-1909JPN000565J

PATIENT
  Sex: Female

DRUGS (7)
  1. TETRAMIDE TABLETS 30 MG [Suspect]
     Active Substance: MIANSERIN HYDROCHLORIDE
     Indication: DEPRESSION
     Dosage: 20 MILLIGRAM, HS
     Route: 048
  2. DEPAKENE [Concomitant]
     Active Substance: VALPROIC ACID
     Indication: MANIA
     Dosage: UNK
     Route: 065
  3. TETRAMIDE TABLETS 30 MG [Suspect]
     Active Substance: MIANSERIN HYDROCHLORIDE
     Dosage: 15 MILLIGRAM, HS
     Route: 048
     Dates: start: 20190902
  4. BELSOMRA [Suspect]
     Active Substance: SUVOREXANT
     Indication: INSOMNIA
     Dosage: UNK UNK, HS
     Route: 048
  5. INFLUENZA HA VACCINE [Concomitant]
     Active Substance: INFLUENZA VIRUS VACCINE
     Indication: ANTIVIRAL PROPHYLAXIS
     Dosage: UNK
     Route: 058
  6. TETRAMIDE TABLETS 30 MG [Suspect]
     Active Substance: MIANSERIN HYDROCHLORIDE
     Dosage: 30 MILLIGRAM, HS
     Route: 048
     Dates: end: 20190901
  7. EURODIN [Concomitant]
     Indication: INSOMNIA
     Dosage: UNK, HS
     Route: 048

REACTIONS (9)
  - Middle insomnia [Unknown]
  - Malaise [Unknown]
  - Depression [Unknown]
  - Somnolence [Unknown]
  - Blood pressure decreased [Not Recovered/Not Resolved]
  - Influenza [Unknown]
  - Drug ineffective [Unknown]
  - Adverse event [Unknown]
  - Diabetes mellitus inadequate control [Unknown]

NARRATIVE: CASE EVENT DATE: 20190904
